FAERS Safety Report 9435689 (Version 1)
Quarter: 2013Q3

REPORT INFORMATION
  Report Type: Spontaneous
  Country: US (occurrence: US)
  Receive Date: 20130801
  Receipt Date: 20130801
  Transmission Date: 20140515
  Serious: Yes (Hospitalization)
  Sender: FDA-Public Use
  Company Number: US-BAYER-2013-092335

PATIENT
  Age: 36 Year
  Sex: Female

DRUGS (2)
  1. YASMIN [Suspect]
  2. HYDROCHLOROTHIAZIDE [Concomitant]

REACTIONS (1)
  - Pulmonary embolism [None]
